FAERS Safety Report 14434358 (Version 2)
Quarter: 2018Q2

REPORT INFORMATION
  Report Type: Spontaneous
  Country: DE (occurrence: DE)
  Receive Date: 20180124
  Receipt Date: 20180521
  Transmission Date: 20180711
  Serious: Yes (Life-Threatening, Hospitalization, Disabling, Other)
  Sender: FDA-Public Use
  Company Number: DE-REGENERON PHARMACEUTICALS, INC.-2018-12003

PATIENT

DRUGS (2)
  1. EYLEA [Suspect]
     Active Substance: AFLIBERCEPT
     Indication: RETINAL HAEMORRHAGE
     Dosage: DOSE, FREQUENCY AND TOTAL NUMBER OF INJECTIONS WERE NOT REPORTED
     Route: 031
     Dates: start: 20150707, end: 20161115
  2. LUCENTIS [Suspect]
     Active Substance: RANIBIZUMAB
     Indication: RETINAL HAEMORRHAGE
     Dosage: UNK
     Route: 031
     Dates: start: 20140513, end: 20170904

REACTIONS (3)
  - Cerebrovascular accident [Unknown]
  - Cerebral infarction [Unknown]
  - Cerebral infarction [Unknown]

NARRATIVE: CASE EVENT DATE: 201709
